FAERS Safety Report 13190313 (Version 1)
Quarter: 2017Q1

REPORT INFORMATION
  Report Type: Spontaneous
  Country: US (occurrence: US)
  Receive Date: 20170206
  Receipt Date: 20170206
  Transmission Date: 20170428
  Serious: Yes (Other)
  Sender: FDA-Public Use
  Company Number: US-PFIZER INC-2017050138

PATIENT
  Age: 78 Year
  Sex: Female

DRUGS (2)
  1. IBRANCE [Suspect]
     Active Substance: PALBOCICLIB
     Dosage: 125 MG, ONCE DAILY (QD), FOR 21 DAYS ON AND 7 DAYS OFF
     Route: 048
     Dates: end: 20170131
  2. LETROZOLE. [Concomitant]
     Active Substance: LETROZOLE
     Dosage: UNK

REACTIONS (4)
  - Neutropenia [Unknown]
  - Parkinson^s disease [Unknown]
  - Blood test abnormal [Unknown]
  - Condition aggravated [Unknown]
